FAERS Safety Report 17383129 (Version 2)
Quarter: 2021Q1

REPORT INFORMATION
  Report Type: Spontaneous
  Country: US (occurrence: US)
  Receive Date: 20200206
  Receipt Date: 20210201
  Transmission Date: 20210419
  Serious: No
  Sender: FDA-Public Use
  Company Number: US-ABBVIE-19K-163-2888023-00

PATIENT
  Sex: Female

DRUGS (1)
  1. HUMIRA [Suspect]
     Active Substance: ADALIMUMAB
     Indication: HIDRADENITIS
     Route: 058

REACTIONS (10)
  - Mental disorder [Unknown]
  - Anxiety [Recovering/Resolving]
  - Somnolence [Unknown]
  - Impaired quality of life [Unknown]
  - Hidradenitis [Not Recovered/Not Resolved]
  - Drug ineffective [Unknown]
  - Helplessness [Unknown]
  - Spondylitis [Unknown]
  - Depression [Recovering/Resolving]
  - Pain [Unknown]
